FAERS Safety Report 23661745 (Version 1)
Quarter: 2024Q1

REPORT INFORMATION
  Report Type: Spontaneous
  Country: FR (occurrence: FR)
  Receive Date: 20240322
  Receipt Date: 20240322
  Transmission Date: 20240410
  Serious: Yes (Other)
  Sender: FDA-Public Use
  Company Number: FR-PFM-2023-02354

PATIENT
  Age: 72 Year
  Sex: Male

DRUGS (4)
  1. DOXYCYCLINE [Suspect]
     Active Substance: DOXYCYCLINE
     Indication: Off label use
     Dosage: 200 MILLIGRAM, DAILY
     Route: 065
     Dates: start: 2021
  2. DOXYCYCLINE [Suspect]
     Active Substance: DOXYCYCLINE
     Indication: Folliculitis
  3. LAZERTINIB [Suspect]
     Active Substance: LAZERTINIB
     Indication: Lung adenocarcinoma stage IV
     Dosage: UNK
     Route: 065
     Dates: start: 202105
  4. AMIVANTAMAB [Concomitant]
     Active Substance: AMIVANTAMAB
     Indication: Lung adenocarcinoma stage IV
     Dosage: UNK
     Route: 065
     Dates: start: 202105

REACTIONS (4)
  - Drug eruption [Recovered/Resolved]
  - Lymphadenopathy [Recovered/Resolved]
  - Product use in unapproved indication [Unknown]
  - Off label use [Unknown]

NARRATIVE: CASE EVENT DATE: 20210801
